FAERS Safety Report 8621839-2 (Version None)
Quarter: 2012Q3

REPORT INFORMATION
  Report Type: 
  Country: None (occurrence: None)
  Receive Date: 20120822
  Receipt Date: 20120822
  Transmission Date: 20120928
  Serious: No
  Sender: FDA-Public Use
  Company Number: None

PATIENT

DRUGS (1)
  1. METRONIDAZOLE [Suspect]
     Dosage: 500 MILLIGRAMS BOTTLE
     Dates: start: 20120807, end: 20120814

REACTIONS (5)
  - NAUSEA [None]
  - AMNESIA [None]
  - ILEITIS [None]
  - CONFUSIONAL STATE [None]
  - GAIT DISTURBANCE [None]
